FAERS Safety Report 13910961 (Version 3)
Quarter: 2017Q4

REPORT INFORMATION
  Report Type: Spontaneous
  Country: GB (occurrence: GB)
  Receive Date: 20170828
  Receipt Date: 20171011
  Transmission Date: 20180320
  Serious: Yes (Hospitalization, Disabling, Other)
  Sender: FDA-Public Use
  Company Number: GB-DRREDDYS-GER/UKI/17/0092814

PATIENT
  Age: 76 Year
  Sex: Female
  Weight: 58 kg

DRUGS (8)
  1. ACCORD HEALTHCARE SERTRALINE [Suspect]
     Active Substance: SERTRALINE HYDROCHLORIDE
     Indication: ANXIETY
     Dates: start: 20160214, end: 201606
  2. SERTRALINE [Suspect]
     Active Substance: SERTRALINE HYDROCHLORIDE
     Indication: PRODUCT USED FOR UNKNOWN INDICATION
     Dates: start: 201601, end: 201606
  3. NITROFURANTOIN. [Suspect]
     Active Substance: NITROFURANTOIN
     Indication: CYSTITIS
     Dates: end: 201605
  4. NITROFURANTOIN. [Suspect]
     Active Substance: NITROFURANTOIN
     Indication: URINARY TRACT INFECTION
  5. CO-AMILOZIDE [Concomitant]
     Active Substance: AMILORIDE HYDROCHLORIDE\HYDROCHLOROTHIAZIDE
     Indication: DIURETIC THERAPY
     Dosage: UNK (AT LEAST 20 YEARS )
  6. PANTOPRAZOLE [Concomitant]
     Active Substance: PANTOPRAZOLE
     Indication: GASTROOESOPHAGEAL REFLUX DISEASE
     Dosage: UNK (AROUND 5 YEARS )
  7. PARACETAMOL [Concomitant]
     Active Substance: ACETAMINOPHEN
     Indication: PRODUCT USED FOR UNKNOWN INDICATION
  8. PANTOPRAZOLE [Concomitant]
     Active Substance: PANTOPRAZOLE
     Indication: DRUG THERAPY

REACTIONS (13)
  - Cough [Unknown]
  - Pyrexia [Unknown]
  - Squamous cell carcinoma [Unknown]
  - Fatigue [Unknown]
  - Interstitial lung disease [Unknown]
  - Arthropathy [Unknown]
  - Disability [Unknown]
  - Limb discomfort [Unknown]
  - Weight decreased [Unknown]
  - Malaise [Unknown]
  - Atrial fibrillation [Unknown]
  - Alveolitis allergic [Unknown]
  - Dyspnoea [Not Recovered/Not Resolved]

NARRATIVE: CASE EVENT DATE: 2016
